FAERS Safety Report 12578537 (Version 1)
Quarter: 2016Q3

REPORT INFORMATION
  Report Type: Spontaneous
  Country: US (occurrence: None)
  Receive Date: 20160720
  Receipt Date: 20160720
  Transmission Date: 20161109
  Serious: Yes (Hospitalization)
  Sender: FDA-Public Use
  Company Number: None

PATIENT
  Age: 75 Year
  Sex: Female
  Weight: 88.2 kg

DRUGS (1)
  1. OLANZAPINE ODT 20MG [Suspect]
     Active Substance: OLANZAPINE
     Indication: PSYCHOMOTOR HYPERACTIVITY
     Route: 048
     Dates: start: 20160520, end: 20160604

REACTIONS (4)
  - Cellulitis [None]
  - Gait disturbance [None]
  - Oedema peripheral [None]
  - Hyponatraemia [None]

NARRATIVE: CASE EVENT DATE: 20160604
